FAERS Safety Report 7002559-7 (Version None)
Quarter: 2010Q3

REPORT INFORMATION
  Report Type: 
  Country: None (occurrence: None)
  Receive Date: 20100920
  Receipt Date: 20090918
  Transmission Date: 20110219
  Serious: No
  Sender: FDA-Public Use
  Company Number: US-ASTRAZENECA-2009SE14164

PATIENT
  Age: 62 Year
  Sex: Female
  Weight: 74.8 kg

DRUGS (12)
  1. SEROQUEL [Suspect]
     Indication: BIPOLAR DISORDER
     Route: 048
     Dates: start: 20090801, end: 20090915
  2. ATENOLOL [Concomitant]
  3. PRILOSEC [Concomitant]
  4. LISINOPRIL [Concomitant]
  5. FOLIC ACID [Concomitant]
  6. LEVOXYL [Concomitant]
  7. SIMVASTATIN [Concomitant]
  8. CALCIUM SUPPLEMENT [Concomitant]
  9. MULTIPLE VITAMINS [Concomitant]
  10. METHOTREXATE [Concomitant]
  11. ADVIL LIQUI-GELS [Concomitant]
  12. TYLENOL [Concomitant]

REACTIONS (1)
  - HOT FLUSH [None]
